FAERS Safety Report 6407091-7 (Version None)
Quarter: 2009Q4

REPORT INFORMATION
  Report Type: 
  Country: None (occurrence: None)
  Receive Date: 20091020
  Receipt Date: 20091014
  Transmission Date: 20100525
  Serious: Yes (Life-Threatening)
  Sender: FDA-Public Use
  Company Number: DE-NOVOPROD-292784

PATIENT
  Age: 76 Year
  Sex: Male
  Weight: 65 kg

DRUGS (4)
  1. LEVEMIR [Suspect]
     Indication: TYPE 2 DIABETES MELLITUS
     Dosage: 6-8 UNITS
     Route: 058
     Dates: start: 20060901
  2. AMLODIPIN                          /00972401/ [Concomitant]
     Route: 048
     Dates: start: 20090601
  3. BISOPROLOL [Concomitant]
     Route: 048
     Dates: start: 20061101
  4. HYDROCHLOROTHIAZIDE [Concomitant]
     Route: 048
     Dates: start: 20061101

REACTIONS (1)
  - NEOPLASM MALIGNANT [None]
